FAERS Safety Report 6159594-0 (Version None)
Quarter: 2009Q2

REPORT INFORMATION
  Report Type: 
  Country: None (occurrence: None)
  Receive Date: 20090415
  Receipt Date: 20090415
  Transmission Date: 20091009
  Serious: Yes (Other)
  Sender: FDA-Public Use
  Company Number: None

PATIENT
  Sex: Female
  Weight: 85.2762 kg

DRUGS (2)
  1. WELLBUTRIN XL [Suspect]
     Dosage: 150-300 MG ONCE PO Q AM
     Dates: start: 20090224
  2. TYLENOL [Concomitant]

REACTIONS (4)
  - ANXIETY [None]
  - DEPRESSED MOOD [None]
  - DYSPHAGIA [None]
  - PRODUCT SUBSTITUTION ISSUE [None]
